FAERS Safety Report 9729873 (Version 14)
Quarter: 2018Q2

REPORT INFORMATION
  Report Type: Spontaneous
  Country: NO (occurrence: NO)
  Receive Date: 20131204
  Receipt Date: 20180625
  Transmission Date: 20180711
  Serious: Yes (Death, Life-Threatening, Other)
  Sender: FDA-Public Use
  Company Number: NO-009507513-1312NOR001133

PATIENT
  Age: 20 Year
  Sex: Female

DRUGS (25)
  1. SEROQUEL [Suspect]
     Active Substance: QUETIAPINE FUMARATE
  2. CIPRALEX [Suspect]
     Active Substance: ESCITALOPRAM OXALATE
  3. SOBRIL [Suspect]
     Active Substance: OXAZEPAM
  4. PINEX FORTE [Suspect]
     Active Substance: ACETAMINOPHEN\CODEINE PHOSPHATE
     Indication: DEPRESSION
     Dosage: UNK
     Route: 065
  5. SAROTEX [Suspect]
     Active Substance: AMITRIPTYLINE HYDROCHLORIDE
     Indication: DEPRESSION
     Dosage: UNK
     Route: 065
  6. CATAPRESAN [Suspect]
     Active Substance: CLONIDINE
     Indication: DEPRESSION
     Dosage: 50 MG, UNK
  7. RIVOTRIL [Suspect]
     Active Substance: CLONAZEPAM
     Indication: DEPRESSION
     Dosage: UNK
     Route: 065
  8. SOBRIL [Suspect]
     Active Substance: OXAZEPAM
     Indication: PRODUCT USED FOR UNKNOWN INDICATION
     Dosage: UNK
     Route: 065
  9. TRAMADOL HYDROCHLORIDE. [Suspect]
     Active Substance: TRAMADOL HYDROCHLORIDE
     Indication: DEPRESSION
     Dosage: UNK
     Route: 065
  10. ATARAX [Suspect]
     Active Substance: HYDROXYZINE HYDROCHLORIDE
     Indication: DEPRESSION
     Dosage: UNK
     Route: 065
  11. CIPRALEX [Suspect]
     Active Substance: ESCITALOPRAM OXALATE
     Indication: DEPRESSION
     Dosage: UNK
     Route: 065
  12. CYANOCOBALAMIN. [Concomitant]
     Active Substance: CYANOCOBALAMIN
     Indication: PRODUCT USED FOR UNKNOWN INDICATION
     Dosage: UNK
     Route: 065
  13. REMERON [Suspect]
     Active Substance: MIRTAZAPINE
     Indication: DEPRESSION
     Dosage: UNK
     Route: 065
  14. TRUXAL (CHLORPROTHIXENE HYDROCHLORIDE) [Suspect]
     Active Substance: CHLORPROTHIXENE
     Indication: PRODUCT USED FOR UNKNOWN INDICATION
     Dosage: DAILY DOSE 600MG TO 1200MG
     Route: 065
  15. DIACETYLMORPHINE [Concomitant]
     Active Substance: DIAMORPHINE
     Indication: PRODUCT USED FOR UNKNOWN INDICATION
     Dosage: UNK
     Route: 065
  16. LAMICTAL [Suspect]
     Active Substance: LAMOTRIGINE
     Indication: DEPRESSION
     Dosage: 100 MG, UNK
  17. NOZINAN [Suspect]
     Active Substance: LEVOMEPROMAZINE
     Indication: DEPRESSION
     Dosage: UNK
     Route: 065
  18. NOBLIGAN [Suspect]
     Active Substance: TRAMADOL HYDROCHLORIDE
     Indication: DEPRESSION
     Dosage: 200 MG, UNK; STRENGTH: 50 MG-200 MG
     Route: 065
  19. SEROQUEL [Suspect]
     Active Substance: QUETIAPINE FUMARATE
     Indication: DEPRESSION
     Dosage: UNK
     Route: 065
  20. CIPRAMIL [Suspect]
     Active Substance: CITALOPRAM HYDROBROMIDE
     Indication: PRODUCT USED FOR UNKNOWN INDICATION
     Dosage: UNK
     Route: 065
  21. VIVAL [Suspect]
     Active Substance: DIAZEPAM
     Indication: DEPRESSION
     Dosage: UNK
     Route: 065
  22. OXYNORM [Suspect]
     Active Substance: OXYCODONE HYDROCHLORIDE
     Indication: DEPRESSION
     Dosage: 10 MG, UNK; STRENGTH: 5 MG-10 MG
     Route: 065
  23. NOBLIGAN [Suspect]
     Active Substance: TRAMADOL HYDROCHLORIDE
     Dosage: 200 MG, UNK
  24. ORFIRIL [Suspect]
     Active Substance: VALPROATE SODIUM
     Indication: DEPRESSION
     Dosage: 1200 MG, UNK
  25. IMOVANE [Suspect]
     Active Substance: ZOPICLONE
     Indication: DEPRESSION
     Dosage: UNK
     Route: 048

REACTIONS (6)
  - Unevaluable event [Unknown]
  - Medication error [Unknown]
  - Intentional self-injury [Unknown]
  - Sedation [Unknown]
  - Completed suicide [Fatal]
  - Overdose [Fatal]

NARRATIVE: CASE EVENT DATE: 20121105
